FAERS Safety Report 11132457 (Version 2)
Quarter: 2015Q2

REPORT INFORMATION
  Report Type: Spontaneous
  Country: US (occurrence: US)
  Receive Date: 20150522
  Receipt Date: 20150604
  Transmission Date: 20150821
  Serious: Yes (Other)
  Sender: FDA-Public Use
  Company Number: CHPA2015US006468

PATIENT
  Age: 59 Year
  Sex: Female

DRUGS (4)
  1. VOLTAREN [Suspect]
     Active Substance: DICLOFENAC SODIUM
     Indication: INFLAMMATION
     Dosage: 2 G, QD
     Route: 061
     Dates: start: 201504, end: 20150520
  2. VOLTAREN [Suspect]
     Active Substance: DICLOFENAC SODIUM
     Indication: FIBROMYALGIA
  3. VOLTAREN [Suspect]
     Active Substance: DICLOFENAC SODIUM
     Indication: PERIARTHRITIS
     Dosage: 2 G, QD
     Route: 061
     Dates: start: 2012
  4. VOLTAREN [Suspect]
     Active Substance: DICLOFENAC SODIUM
     Indication: SOFT TISSUE INJURY

REACTIONS (8)
  - Incorrect dose administered [Unknown]
  - Inappropriate schedule of drug administration [Unknown]
  - Wheezing [Recovered/Resolved]
  - Drug administered at inappropriate site [Unknown]
  - Off label use [Unknown]
  - Oral discomfort [Recovered/Resolved]
  - Asthma [Recovered/Resolved]
  - Swollen tongue [Recovered/Resolved]

NARRATIVE: CASE EVENT DATE: 2012
